FAERS Safety Report 8321680-4 (Version None)
Quarter: 2012Q2

REPORT INFORMATION
  Report Type: 
  Country: None (occurrence: None)
  Receive Date: 20120430
  Receipt Date: 20100114
  Transmission Date: 20120825
  Serious: No
  Sender: FDA-Public Use
  Company Number: US-TEVA-2009011998

PATIENT
  Sex: Female
  Weight: 67.192 kg

DRUGS (16)
  1. RELAFEN [Concomitant]
     Dates: start: 20010301, end: 20091001
  2. PROVATE 21/7 [Concomitant]
     Dates: start: 20090703, end: 20091001
  3. ADVACLEAR [Concomitant]
     Dates: start: 20090509, end: 20091001
  4. XANAX [Concomitant]
  5. NUVIGIL [Suspect]
     Indication: SLEEP APNOEA SYNDROME
     Dosage: 250 MILLIGRAM;
     Route: 048
     Dates: start: 20090801, end: 20091022
  6. NUVIGIL [Suspect]
     Indication: HYPERSOMNIA
  7. LIOTHYRONINE SODIUM [Concomitant]
     Dates: start: 20090703
  8. TRAZODONE HCL [Concomitant]
     Dates: start: 20081021
  9. LORTADINE [Concomitant]
     Dates: start: 20070507, end: 20091001
  10. ADDERAL XR [Concomitant]
     Dates: start: 20090318, end: 20091001
  11. PREMPRO [Concomitant]
     Dates: start: 20070201, end: 20091001
  12. HYDROCHLOROTHIAZIDE [Concomitant]
     Dates: start: 20071207
  13. NORVASC [Concomitant]
     Dates: start: 20060206
  14. PROVIGIL [Concomitant]
     Route: 048
     Dates: start: 20071201
  15. VITAMIN D [Concomitant]
     Dates: start: 20090703, end: 20091001
  16. MULTIPLE VITAMINS [Concomitant]

REACTIONS (4)
  - RASH PRURITIC [None]
  - TONGUE COATED [None]
  - CONTUSION [None]
  - MACULE [None]
